FAERS Safety Report 9289479 (Version 1)
Quarter: 2013Q2

REPORT INFORMATION
  Report Type: Spontaneous
  Country: GB (occurrence: GB)
  Receive Date: 20130514
  Receipt Date: 20130514
  Transmission Date: 20140414
  Serious: Yes (Hospitalization)
  Sender: FDA-Public Use
  Company Number: GB-TEVA-403777ISR

PATIENT
  Age: 35 Year
  Sex: Male

DRUGS (4)
  1. PREDNISOLONE [Suspect]
     Indication: INFLAMMATORY BOWEL DISEASE
     Dosage: 40 MILLIGRAM DAILY;
     Route: 065
  2. PREDNISOLONE [Suspect]
     Dosage: 5 MILLIGRAM DAILY;
     Route: 065
  3. WARFARIN [Suspect]
     Indication: ANTICOAGULANT THERAPY
     Route: 065
  4. MESALAZINE [Concomitant]
     Indication: INFLAMMATORY BOWEL DISEASE
     Route: 065

REACTIONS (8)
  - Pulmonary embolism [Recovered/Resolved]
  - Haematoma [Recovered/Resolved]
  - Retroperitoneal haematoma [Recovered/Resolved]
  - Breast haematoma [Recovered/Resolved]
  - Deep vein thrombosis [Recovered/Resolved]
  - Bone density decreased [Unknown]
  - Venous thrombosis [Recovered/Resolved]
  - Inflammatory bowel disease [Unknown]
